FAERS Safety Report 23339738 (Version 2)
Quarter: 2024Q1

REPORT INFORMATION
  Report Type: Spontaneous
  Country: JP (occurrence: JP)
  Receive Date: 20231226
  Receipt Date: 20240116
  Transmission Date: 20240410
  Serious: Yes (Other)
  Sender: FDA-Public Use
  Company Number: JP-DAIICHI SANKYO, INC.-DSJ-2023-153153

PATIENT
  Age: 39 Year
  Sex: Male
  Weight: 99.3 kg

DRUGS (8)
  1. VANFLYTA [Suspect]
     Active Substance: QUIZARTINIB DIHYDROCHLORIDE
     Indication: Acute myeloid leukaemia
     Dosage: 17.7 MG, QD
     Route: 048
     Dates: start: 20230913
  2. IDARUBICIN HYDROCHLORIDE [Concomitant]
     Active Substance: IDARUBICIN HYDROCHLORIDE
     Indication: Acute myeloid leukaemia
     Dosage: UNK
     Route: 041
     Dates: start: 20230903, end: 20230905
  3. CYTARABINE [Concomitant]
     Active Substance: CYTARABINE
     Indication: Acute myeloid leukaemia
     Dosage: UNK
     Route: 041
     Dates: start: 20230903, end: 20230909
  4. HYDROXYUREA [Concomitant]
     Active Substance: HYDROXYUREA
     Indication: Acute myeloid leukaemia
     Dosage: 1500MG/DAY
     Route: 065
     Dates: start: 202309, end: 202309
  5. UNSPECIFIED INGREDIENT [Concomitant]
     Active Substance: UNSPECIFIED INGREDIENT
     Indication: Acute myeloid leukaemia
     Dosage: UNK
     Route: 065
     Dates: start: 202309, end: 202309
  6. ITRACONAZOLE [Concomitant]
     Active Substance: ITRACONAZOLE
     Indication: Acute myeloid leukaemia
     Dosage: UNK
     Route: 065
     Dates: start: 20230913
  7. THROMBOMODULIN ALFA (RECOMBINANT) FORMULATION [Concomitant]
     Indication: Disseminated intravascular coagulation
     Dosage: UNK
     Route: 065
     Dates: start: 202309, end: 202309
  8. HISTONE DEACETYLASE  INHIBITORS [Concomitant]
     Indication: Acute myeloid leukaemia
     Dosage: 2000MG/SQMX2/DAY
     Route: 065
     Dates: start: 202310

REACTIONS (1)
  - Subarachnoid haemorrhage [Recovered/Resolved]

NARRATIVE: CASE EVENT DATE: 20230919
